FAERS Safety Report 18374218 (Version 1)
Quarter: 2020Q4

REPORT INFORMATION
  Report Type: Spontaneous
  Country: CH (occurrence: CH)
  Receive Date: 20201013
  Receipt Date: 20201013
  Transmission Date: 20210114
  Serious: Yes (Other)
  Sender: FDA-Public Use
  Company Number: CH-ROCHE-2691939

PATIENT
  Age: 62 Year
  Sex: Female

DRUGS (2)
  1. DAFALGAN [Concomitant]
     Active Substance: ACETAMINOPHEN
     Indication: PRODUCT USED FOR UNKNOWN INDICATION
  2. BONVIVA [Suspect]
     Active Substance: IBANDRONATE SODIUM
     Indication: OSTEOPOROSIS
     Route: 065
     Dates: start: 201910

REACTIONS (4)
  - Dizziness [Unknown]
  - Rash pruritic [Unknown]
  - Hypersensitivity [Unknown]
  - Blood pressure decreased [Unknown]
